FAERS Safety Report 7800541-0 (Version None)
Quarter: 2011Q4

REPORT INFORMATION
  Report Type: 
  Country: None (occurrence: None)
  Receive Date: 20111006
  Receipt Date: 20111002
  Transmission Date: 20120403
  Serious: No
  Sender: FDA-Public Use
  Company Number: US-PFIZER INC-2011234633

PATIENT
  Sex: Female

DRUGS (1)
  1. PRISTIQ [Suspect]
     Indication: DEPRESSION
     Dosage: 50 MG, UNK
     Route: 048
     Dates: start: 20111001

REACTIONS (8)
  - HYPOAESTHESIA [None]
  - CONFUSIONAL STATE [None]
  - DRUG INTOLERANCE [None]
  - THINKING ABNORMAL [None]
  - POOR QUALITY SLEEP [None]
  - FEELING ABNORMAL [None]
  - NAUSEA [None]
  - ABNORMAL SENSATION IN EYE [None]
